FAERS Safety Report 6212384-2 (Version None)
Quarter: 2009Q2

REPORT INFORMATION
  Report Type: 
  Country: None (occurrence: None)
  Receive Date: 20090603
  Receipt Date: 20071210
  Transmission Date: 20091009
  Serious: Yes (Hospitalization, Other)
  Sender: FDA-Public Use
  Company Number: US-ASTRAZENECA-2006UW27665

PATIENT
  Age: 39 Year
  Sex: Male
  Weight: 166.9 kg

DRUGS (29)
  1. SEROQUEL [Suspect]
     Indication: BIPOLAR DISORDER
     Route: 048
     Dates: start: 20030601, end: 20060101
  2. SEROQUEL [Suspect]
     Indication: SCHIZOPHRENIA
     Route: 048
     Dates: start: 20030601, end: 20060101
  3. SEROQUEL [Suspect]
     Indication: DEPRESSION
     Route: 048
     Dates: start: 20030601, end: 20060101
  4. SEROQUEL [Suspect]
     Indication: HALLUCINATION, AUDITORY
     Route: 048
     Dates: start: 20030601, end: 20060101
  5. SEROQUEL [Suspect]
     Dosage: 50 MG - 300 MG DAILY
     Route: 048
     Dates: start: 20030902
  6. SEROQUEL [Suspect]
     Dosage: 50 MG - 300 MG DAILY
     Route: 048
     Dates: start: 20030902
  7. SEROQUEL [Suspect]
     Dosage: 50 MG - 300 MG DAILY
     Route: 048
     Dates: start: 20030902
  8. SEROQUEL [Suspect]
     Dosage: 50 MG - 300 MG DAILY
     Route: 048
     Dates: start: 20030902
  9. ABILIFY [Concomitant]
     Route: 048
     Dates: start: 20060109
  10. RISPERDAL [Concomitant]
     Dates: start: 20060701
  11. ZYPREXA [Concomitant]
  12. LEXAPRO [Concomitant]
     Dates: start: 20060202
  13. METFORMIN HCL [Concomitant]
     Dates: start: 20060106
  14. CRESTOR [Concomitant]
     Dates: start: 20060101
  15. ENALAPRIL [Concomitant]
     Dates: start: 20060106
  16. ENALAPRIL [Concomitant]
     Dates: start: 20060208
  17. GLIPIZIDE [Concomitant]
     Dates: start: 20060101
  18. LANTUS U-100 INSULIN [Concomitant]
     Dates: start: 20060303
  19. NORVASC [Concomitant]
     Dates: start: 20060522
  20. WALGREENS SYR/NDL [Concomitant]
     Dosage: 29G 0.5ML U/F
     Dates: start: 20060830
  21. TESTOSTERONE [Concomitant]
     Dates: start: 20070111
  22. LOVASTATIN [Concomitant]
     Dates: start: 20070205
  23. OXYCODONE HCL AND ACETAMINOPHEN [Concomitant]
     Dosage: 7.5-3.25 MG
     Dates: start: 20070508
  24. AMLODIPINE BESYLATE [Concomitant]
     Dates: start: 20070603
  25. CLONAZEPAM [Concomitant]
     Dates: start: 20070706
  26. BUPROPION HCL [Concomitant]
     Dates: start: 20070706
  27. DIOVAN [Concomitant]
  28. LIPITOR [Concomitant]
  29. VASOTEC [Concomitant]

REACTIONS (8)
  - DIABETES MELLITUS [None]
  - DIABETES MELLITUS INADEQUATE CONTROL [None]
  - DIABETIC NEPHROPATHY [None]
  - INSULIN-REQUIRING TYPE 2 DIABETES MELLITUS [None]
  - SUICIDAL IDEATION [None]
  - TYPE 1 DIABETES MELLITUS [None]
  - TYPE 2 DIABETES MELLITUS [None]
  - WEIGHT INCREASED [None]
